FAERS Safety Report 6380248-X (Version None)
Quarter: 2009Q3

REPORT INFORMATION
  Report Type: 
  Country: None (occurrence: None)
  Receive Date: 20090921
  Receipt Date: 20090910
  Transmission Date: 20100115
  Serious: Yes (Other)
  Sender: FDA-Public Use
  Company Number: 2009AP003589

PATIENT
  Age: 71 Year
  Sex: Female

DRUGS (8)
  1. SERTRALINE HYDROCHLORIDE [Suspect]
     Indication: DEPRESSION
     Dosage: 50 MG;QD
  2. AMISULPRIDE (AMISULPRIDE) [Concomitant]
  3. DIAZEPAM [Concomitant]
  4. NICERGOLINE (NICERGOLINE) [Concomitant]
  5. AMLODIPINE BESYLATE [Concomitant]
  6. ASPIRIN [Concomitant]
  7. CANDESARTAN CILEXETIL [Concomitant]
  8. ATENOLOL [Concomitant]

REACTIONS (4)
  - ASPARTATE AMINOTRANSFERASE INCREASED [None]
  - BLOOD LACTATE DEHYDROGENASE INCREASED [None]
  - BLOOD UREA INCREASED [None]
  - RHABDOMYOLYSIS [None]
